FAERS Safety Report 24336188 (Version 1)
Quarter: 2024Q3

REPORT INFORMATION
  Report Type: Spontaneous
  Country: US (occurrence: US)
  Receive Date: 20240919
  Receipt Date: 20240919
  Transmission Date: 20241016
  Serious: No
  Sender: ROCHE
  Company Number: US-ROCHE-3513249

PATIENT
  Age: 66 Year
  Sex: Female
  Weight: 74.84 kg

DRUGS (2)
  1. TAMIFLU [Suspect]
     Active Substance: OSELTAMIVIR PHOSPHATE
     Indication: Influenza
     Dosage: TOOK FOR FIVE DAYS; ONGOING: NO
     Route: 048
     Dates: start: 20240211, end: 20240215
  2. AMOXICILLIN [Concomitant]
     Active Substance: AMOXICILLIN
     Indication: Influenza
     Route: 048
     Dates: start: 20240211

REACTIONS (4)
  - Vision blurred [Recovered/Resolved]
  - Vitreous floaters [Recovered/Resolved]
  - Photopsia [Recovered/Resolved]
  - Eyelid pain [Recovered/Resolved]
